FAERS Safety Report 8781383 (Version 2)
Quarter: 2012Q4

REPORT INFORMATION
  Report Type: 
  Country: US (occurrence: US)
  Receive Date: 20120913
  Receipt Date: 20121003
  Transmission Date: 20130627
  Serious: Yes (Other)
  Sender: FDA-Public Use
  Company Number: PHEH2012US017534

PATIENT
  Sex: Female

DRUGS (4)
  1. DIOVAN [Suspect]
     Indication: HYPERTENSION
     Dosage: 320 mg, QD
     Route: 048
  2. METFORMIN [Concomitant]
  3. IBUPROFEN [Concomitant]
  4. CALTRATE [Concomitant]

REACTIONS (2)
  - Diabetes mellitus [Unknown]
  - Headache [Unknown]
